FAERS Safety Report 16285098 (Version 2)
Quarter: 2019Q3

REPORT INFORMATION
  Report Type: Report from Study
  Country: CA (occurrence: CA)
  Receive Date: 20190508
  Receipt Date: 20190723
  Transmission Date: 20191004
  Serious: Yes (Other)
  Sender: FDA-Public Use
  Company Number: CA-NALPROPION PHARMACEUTICALS INC.-2019-007212

PATIENT

DRUGS (6)
  1. OLMETEC PLUS [Concomitant]
     Active Substance: HYDROCHLOROTHIAZIDE\OLMESARTAN MEDOXOMIL
     Indication: HYPERTENSION
     Dosage: 1 DF, UNK
     Route: 048
  2. CONTRAVE [Suspect]
     Active Substance: BUPROPION HYDROCHLORIDE\NALTREXONE HYDROCHLORIDE
     Dosage: IN THE MORNING (AM), SECOND ATTEMPT
     Route: 048
     Dates: start: 20190505, end: 20190511
  3. CONTRAVE [Suspect]
     Active Substance: BUPROPION HYDROCHLORIDE\NALTREXONE HYDROCHLORIDE
     Dosage: 2 TABLETS IN THE MORNING AND TWO TABLETS IN THE EVENING,SECOND ATTEMPT,STOPPED APPROX 29/JUN/2019
     Route: 048
     Dates: start: 20190526, end: 201906
  4. CONTRAVE [Suspect]
     Active Substance: BUPROPION HYDROCHLORIDE\NALTREXONE HYDROCHLORIDE
     Indication: WEIGHT CONTROL
     Dosage: FIRST ATTEMPT
     Route: 048
  5. CONTRAVE [Suspect]
     Active Substance: BUPROPION HYDROCHLORIDE\NALTREXONE HYDROCHLORIDE
     Dosage: ONE TABLET IN THE MORNING (AM) AND ONE TABLET IN THE EVENING (PM), SECOND ATTEMPT
     Route: 048
     Dates: start: 20190512, end: 20190518
  6. CONTRAVE [Suspect]
     Active Substance: BUPROPION HYDROCHLORIDE\NALTREXONE HYDROCHLORIDE
     Dosage: 2 TABLETS IN THE MORNING (AM) AND ONE TABLET IN THE EVENING (PM), SECOND ATTEMPT
     Route: 048
     Dates: start: 20190519, end: 20190525

REACTIONS (4)
  - Therapeutic product effect incomplete [Unknown]
  - Weight increased [Not Recovered/Not Resolved]
  - Joint injury [Recovering/Resolving]
  - Hot flush [Recovered/Resolved]

NARRATIVE: CASE EVENT DATE: 2019
